FAERS Safety Report 15272672 (Version 1)
Quarter: 2018Q3

REPORT INFORMATION
  Report Type: Spontaneous
  Country: GB (occurrence: GB)
  Receive Date: 20180813
  Receipt Date: 20180813
  Transmission Date: 20181010
  Serious: Yes (Other)
  Sender: FDA-Public Use
  Company Number: GB-TEVA-639603ACC

PATIENT
  Age: 31 Year
  Sex: Male
  Weight: 81.5 kg

DRUGS (2)
  1. GENERICS UK ZOPICLONE [Concomitant]
     Active Substance: ZOPICLONE
  2. ARIPIPRAZOLE. [Suspect]
     Active Substance: ARIPIPRAZOLE
     Indication: ACUTE PSYCHOSIS
     Route: 048
     Dates: start: 20160211, end: 20160212

REACTIONS (7)
  - Lip swelling [Unknown]
  - Erythema [Unknown]
  - Pain [Unknown]
  - Urticaria [Unknown]
  - Off label use [Unknown]
  - Hypersensitivity [Recovering/Resolving]
  - Joint swelling [Unknown]

NARRATIVE: CASE EVENT DATE: 20160211
